FAERS Safety Report 6198404-2 (Version None)
Quarter: 2009Q2

REPORT INFORMATION
  Report Type: 
  Country: None (occurrence: None)
  Receive Date: 20090518
  Receipt Date: 20090317
  Transmission Date: 20091009
  Serious: No
  Sender: FDA-Public Use
  Company Number: WAES 0903USA02929

PATIENT
  Age: 51 Year
  Sex: Male

DRUGS (2)
  1. ISENTRESS [Suspect]
     Dosage: PO
     Route: 048
     Dates: start: 20080801
  2. TRUVADA [Concomitant]

REACTIONS (2)
  - GENERAL SYMPTOM [None]
  - PRURITUS [None]
